FAERS Safety Report 9403160 (Version 1)
Quarter: 2013Q3

REPORT INFORMATION
  Report Type: Spontaneous
  Country: JP (occurrence: JP)
  Receive Date: 20130716
  Receipt Date: 20130716
  Transmission Date: 20140515
  Serious: Yes (Other)
  Sender: FDA-Public Use
  Company Number: JP-GLAXOSMITHKLINE-B0907629A

PATIENT
  Sex: 0

DRUGS (2)
  1. PAXIL [Suspect]
     Indication: DEPRESSION
     Route: 048
  2. ANAFRANIL [Concomitant]
     Route: 065

REACTIONS (2)
  - Convulsion [Unknown]
  - Loss of consciousness [Unknown]
